FAERS Safety Report 4960792-X (Version None)
Quarter: 2006Q1

REPORT INFORMATION
  Report Type: 
  Country: None (occurrence: None)
  Receive Date: 20060331
  Receipt Date: 20060331
  Transmission Date: 20060701
  Serious: Yes (Death)
  Sender: FDA-Public Use
  Company Number: None

PATIENT
  Age: 44 Year
  Sex: Female
  Weight: 53.5244 kg

DRUGS (1)
  1. AMBIEN CR [Suspect]
     Indication: FATIGUE
     Dosage: 1 TAB    1 TIME   PO
     Route: 048
     Dates: start: 20060306, end: 20060307

REACTIONS (2)
  - COMPLETED SUICIDE [None]
  - GUN SHOT WOUND [None]
